FAERS Safety Report 18565231 (Version 1)
Quarter: 2020Q4

REPORT INFORMATION
  Report Type: Spontaneous
  Country: CN (occurrence: CN)
  Receive Date: 20201201
  Receipt Date: 20201201
  Transmission Date: 20210114
  Serious: Yes (Other)
  Sender: FDA-Public Use
  Company Number: NVSC2020CN319068

PATIENT
  Age: 13 Year
  Sex: Female

DRUGS (2)
  1. CYCLOSPORINE. [Suspect]
     Active Substance: CYCLOSPORINE
     Dosage: 1 MG/KG, QD (EVERY 3 MONTHS)
     Route: 048
  2. CYCLOSPORINE. [Suspect]
     Active Substance: CYCLOSPORINE
     Indication: APLASTIC ANAEMIA
     Dosage: 3 MG/KG, QD (DIVIDED INTO TWO DOSES)
     Route: 048

REACTIONS (3)
  - Product use in unapproved indication [Unknown]
  - Refractory cytopenia with unilineage dysplasia [Unknown]
  - Aplastic anaemia [Unknown]
